FAERS Safety Report 14131980 (Version 2)
Quarter: 2018Q2

REPORT INFORMATION
  Report Type: Spontaneous
  Country: AT (occurrence: AT)
  Receive Date: 20171026
  Receipt Date: 20180403
  Transmission Date: 20180711
  Serious: Yes (Hospitalization, Other)
  Sender: FDA-Public Use
  Company Number: AT-MYLANLABS-2017M1066912

PATIENT
  Age: 45 Year
  Sex: Male
  Weight: 72 kg

DRUGS (69)
  1. SEROQUEL [Suspect]
     Active Substance: QUETIAPINE FUMARATE
     Dosage: 100 MG, QD
     Route: 065
     Dates: start: 20170603, end: 20170705
  2. CISORDINOL                         /00876703/ [Suspect]
     Active Substance: ZUCLOPENTHIXOL
     Dosage: 10 MG, QD
     Route: 065
     Dates: start: 20170622, end: 20170622
  3. TEMESTA                            /00273201/ [Concomitant]
     Active Substance: LORAZEPAM
     Dosage: 1 MG, UNK
     Dates: start: 20170604, end: 20170606
  4. TEMESTA                            /00273201/ [Concomitant]
     Active Substance: LORAZEPAM
     Dosage: 3.75 MG, UNK
     Dates: start: 20170623, end: 20170623
  5. TEMESTA                            /00273201/ [Concomitant]
     Active Substance: LORAZEPAM
     Dosage: 5 MG, UNK
     Dates: start: 20170702, end: 20170704
  6. ALVESCO [Concomitant]
     Active Substance: CICLESONIDE
     Indication: PRODUCT USED FOR UNKNOWN INDICATION
     Dosage: 160 ?G, UNK
     Dates: start: 20170603, end: 20170611
  7. TRAMAL [Concomitant]
     Active Substance: TRAMADOL
     Dosage: 300 MG, UNK
     Dates: start: 20170619, end: 20170619
  8. DIFLUCORTOLONE VALERATE [Concomitant]
     Active Substance: DIFLUCORTOLONE VALERATE
     Indication: PRODUCT USED FOR UNKNOWN INDICATION
     Dosage: UNK
     Dates: start: 20170611, end: 20170710
  9. APREDNISLON [Suspect]
     Active Substance: PREDNISOLONE
     Dosage: 75 MG, QD
     Route: 065
     Dates: start: 20170617, end: 20170617
  10. TEMESTA                            /00273201/ [Concomitant]
     Active Substance: LORAZEPAM
     Indication: PRODUCT USED FOR UNKNOWN INDICATION
     Dosage: 2.5 MG, UNK
     Dates: start: 20170602, end: 20170602
  11. TEMESTA                            /00273201/ [Concomitant]
     Active Substance: LORAZEPAM
     Dosage: 7.5 MG, UNK
     Dates: start: 20170630, end: 20170630
  12. TRAMAL [Concomitant]
     Active Substance: TRAMADOL
     Indication: PRODUCT USED FOR UNKNOWN INDICATION
     Dosage: 200 MG, UNK
     Dates: start: 20170614, end: 20170614
  13. TRAMAL [Concomitant]
     Active Substance: TRAMADOL
     Dosage: 75 MG, UNK
     Dates: start: 20170621, end: 20170621
  14. OLODATEROL [Concomitant]
     Active Substance: OLODATEROL
     Indication: PRODUCT USED FOR UNKNOWN INDICATION
     Dosage: UNK
  15. ADAMON LONG RETARD 150 MG-FILMTABLETTEN [Suspect]
     Active Substance: TRAMADOL HYDROCHLORIDE
     Dosage: 150 MG, QD
     Route: 048
     Dates: start: 20170628, end: 20170706
  16. APREDNISLON [Suspect]
     Active Substance: PREDNISOLONE
     Dosage: 75 MG, QD
     Route: 065
     Dates: start: 20170622, end: 20170627
  17. APREDNISLON [Suspect]
     Active Substance: PREDNISOLONE
     Dosage: 12.5 MG, QD
     Route: 065
     Dates: start: 20170714
  18. SEROQUEL [Suspect]
     Active Substance: QUETIAPINE FUMARATE
     Indication: PRODUCT USED FOR UNKNOWN INDICATION
     Dosage: 300 MG, QD
     Route: 048
     Dates: start: 20170603, end: 20170620
  19. SEROQUEL [Suspect]
     Active Substance: QUETIAPINE FUMARATE
     Dosage: 50 MG, QD
     Route: 065
     Dates: start: 20170620, end: 20170621
  20. TRAMAL [Concomitant]
     Active Substance: TRAMADOL
     Dosage: 325 MG, UNK
     Dates: start: 20170618, end: 20170618
  21. TRAMAL [Concomitant]
     Active Substance: TRAMADOL
     Dosage: 150 MG, UNK
     Dates: start: 20170621, end: 20170627
  22. XANOR [Concomitant]
     Active Substance: ALPRAZOLAM
     Indication: PRODUCT USED FOR UNKNOWN INDICATION
     Dosage: 1.5 MG, UNK
     Dates: start: 20170621, end: 20170626
  23. CORTISONE [Concomitant]
     Active Substance: CORTISONE\HYDROCORTISONE
     Indication: PRODUCT USED FOR UNKNOWN INDICATION
     Dosage: UNK
     Dates: start: 20170630
  24. ADAMON LONG RETARD 150 MG-FILMTABLETTEN [Suspect]
     Active Substance: TRAMADOL HYDROCHLORIDE
     Dosage: 300 MG, QD
     Route: 065
     Dates: start: 20170707, end: 20170711
  25. CISORDINOL                         /00876703/ [Suspect]
     Active Substance: ZUCLOPENTHIXOL
     Indication: PRODUCT USED FOR UNKNOWN INDICATION
     Dosage: 100 MG, QD
     Route: 048
     Dates: start: 20170607, end: 20170607
  26. NOVALGIN (METAMIZOLE SODIUM) [Suspect]
     Active Substance: METAMIZOLE SODIUM
     Dosage: 1 G, QD
     Route: 048
     Dates: start: 20170709, end: 20170709
  27. SOLIAN [Suspect]
     Active Substance: AMISULPRIDE
     Indication: PRODUCT USED FOR UNKNOWN INDICATION
     Dosage: 100 MG, QD
     Route: 048
     Dates: start: 20170627, end: 20170705
  28. SOLIAN [Suspect]
     Active Substance: AMISULPRIDE
     Dosage: 200 MG, QD
     Route: 065
     Dates: start: 20170707, end: 20170709
  29. TEMESTA                            /00273201/ [Concomitant]
     Active Substance: LORAZEPAM
     Dosage: 8.75 MG, UNK
     Dates: start: 20170629, end: 20170629
  30. TRAMAL [Concomitant]
     Active Substance: TRAMADOL
     Dosage: 300 MG, UNK
     Dates: start: 20170615, end: 20170615
  31. TRAMAL [Concomitant]
     Active Substance: TRAMADOL
     Dosage: 150 MG, UNK
     Dates: start: 20170620, end: 20170620
  32. APREDNISLON [Suspect]
     Active Substance: PREDNISOLONE
     Dosage: 50 MG, QD
     Route: 065
     Dates: start: 20170614, end: 20170616
  33. SEROQUEL [Suspect]
     Active Substance: QUETIAPINE FUMARATE
     Dosage: 600 MG, QD
     Route: 048
     Dates: start: 20170621, end: 20170626
  34. CISORDINOL                         /00876703/ [Suspect]
     Active Substance: ZUCLOPENTHIXOL
     Dosage: 20 MG, QD
     Route: 065
     Dates: start: 20170623, end: 20170625
  35. CISORDINOL                         /00876703/ [Suspect]
     Active Substance: ZUCLOPENTHIXOL
     Dosage: 40 MG, QD
     Route: 065
     Dates: start: 20170626, end: 20170626
  36. CISORDINOL                         /00876703/ [Suspect]
     Active Substance: ZUCLOPENTHIXOL
     Dosage: 20 MG, QD
     Route: 065
     Dates: start: 20170627, end: 20170706
  37. SOLIAN [Suspect]
     Active Substance: AMISULPRIDE
     Dosage: 150 MG, QD
     Route: 065
     Dates: start: 20170710, end: 20170710
  38. TEMESTA                            /00273201/ [Concomitant]
     Active Substance: LORAZEPAM
     Dosage: 1 MG, UNK
     Dates: start: 20170608, end: 20170622
  39. TEMESTA                            /00273201/ [Concomitant]
     Active Substance: LORAZEPAM
     Dosage: 6.25 MG, UNK
     Dates: start: 20170701, end: 20170701
  40. ZYPREXA [Concomitant]
     Active Substance: OLANZAPINE
     Indication: PRODUCT USED FOR UNKNOWN INDICATION
     Dosage: 10 MG, UNK
     Dates: start: 20170603, end: 20170603
  41. NACL [Concomitant]
     Active Substance: SODIUM CHLORIDE
     Indication: PRODUCT USED FOR UNKNOWN INDICATION
     Dosage: 1 G, UNK
     Dates: start: 20170621, end: 20170623
  42. NACL [Concomitant]
     Active Substance: SODIUM CHLORIDE
     Dosage: 3 G, UNK
     Dates: start: 20170703, end: 20170706
  43. KCL [Concomitant]
     Active Substance: POTASSIUM CHLORIDE
     Indication: PRODUCT USED FOR UNKNOWN INDICATION
     Dosage: 900 MG, UNK
     Dates: start: 20170707, end: 20170710
  44. TRITTICO [Suspect]
     Active Substance: TRAZODONE HYDROCHLORIDE
     Indication: PRODUCT USED FOR UNKNOWN INDICATION
     Dosage: 150 MG, QD
     Route: 048
     Dates: start: 20170602, end: 20170703
  45. APREDNISLON [Suspect]
     Active Substance: PREDNISOLONE
     Indication: PRODUCT USED FOR UNKNOWN INDICATION
     Dosage: 25 MG, QD
     Route: 048
     Dates: start: 20170603, end: 20170613
  46. APREDNISLON [Suspect]
     Active Substance: PREDNISOLONE
     Dosage: 100 MG, QD
     Route: 065
     Dates: start: 20170618, end: 20170621
  47. APREDNISLON [Suspect]
     Active Substance: PREDNISOLONE
     Dosage: 25 MG, QD
     Route: 065
     Dates: start: 20170711, end: 20170713
  48. SEROQUEL [Suspect]
     Active Substance: QUETIAPINE FUMARATE
     Dosage: 400 MG, QD
     Route: 065
     Dates: start: 20170627, end: 20170627
  49. SEROQUEL [Suspect]
     Active Substance: QUETIAPINE FUMARATE
     Dosage: 800 MG, QD
     Route: 065
     Dates: start: 20170628, end: 20170710
  50. SEROQUEL [Suspect]
     Active Substance: QUETIAPINE FUMARATE
     Dosage: 400 MG, QD
     Route: 065
     Dates: start: 20170711, end: 20170711
  51. NOVALGIN (METAMIZOLE SODIUM) [Suspect]
     Active Substance: METAMIZOLE SODIUM
     Indication: PRODUCT USED FOR UNKNOWN INDICATION
     Dosage: 500 MG, QD
     Route: 048
     Dates: start: 20170617, end: 20170621
  52. DEPAKINE                           /00228501/ [Concomitant]
     Active Substance: VALPROIC ACID
     Dosage: 500 MG, UNK
     Dates: start: 20170611, end: 20170611
  53. TRAMAL [Concomitant]
     Active Substance: TRAMADOL
     Dosage: 400 MG, UNK
     Dates: start: 20170616, end: 20170617
  54. PANTOLOC                           /01263204/ [Concomitant]
     Active Substance: PANTOPRAZOLE SODIUM
     Indication: PRODUCT USED FOR UNKNOWN INDICATION
     Dosage: 40 MG, UNK
     Dates: start: 20170615
  55. TIOTROPIUM BROMIDE MONOHYDRATE [Concomitant]
     Active Substance: TIOTROPIUM BROMIDE MONOHYDRATE
     Indication: PRODUCT USED FOR UNKNOWN INDICATION
     Dosage: UNK
     Dates: start: 20170603
  56. APREDNISLON [Suspect]
     Active Substance: PREDNISOLONE
     Dosage: 50 MG, QD
     Route: 065
     Dates: start: 20170628, end: 20170630
  57. APREDNISLON [Suspect]
     Active Substance: PREDNISOLONE
     Dosage: 50 MG, QD
     Route: 065
     Dates: start: 20170704, end: 20170710
  58. NOVALGIN (METAMIZOLE SODIUM) [Suspect]
     Active Substance: METAMIZOLE SODIUM
     Dosage: 2 G, QD
     Route: 048
     Dates: start: 20170620, end: 20170705
  59. SOLIAN [Suspect]
     Active Substance: AMISULPRIDE
     Dosage: 150 MG, QD
     Route: 065
     Dates: start: 20170706, end: 20170706
  60. TEMESTA                            /00273201/ [Concomitant]
     Active Substance: LORAZEPAM
     Dosage: 3.75 MG, UNK
     Dates: start: 20170705, end: 20170705
  61. TEMESTA                            /00273201/ [Concomitant]
     Active Substance: LORAZEPAM
     Dosage: 2.5 MG, UNK
     Dates: start: 20170706, end: 20170710
  62. ADAMON LONG RETARD 150 MG-FILMTABLETTEN [Suspect]
     Active Substance: TRAMADOL HYDROCHLORIDE
     Indication: PRODUCT USED FOR UNKNOWN INDICATION
     Dosage: 150 MG, QD
     Route: 048
     Dates: start: 20170621, end: 20170627
  63. APREDNISLON [Suspect]
     Active Substance: PREDNISOLONE
     Dosage: 37.5 MG, QD
     Route: 065
     Dates: start: 20170701, end: 20170703
  64. CISORDINOL                         /00876703/ [Suspect]
     Active Substance: ZUCLOPENTHIXOL
     Dosage: 10 MG, QD
     Route: 065
     Dates: start: 20170710, end: 20170710
  65. SOLIAN [Suspect]
     Active Substance: AMISULPRIDE
     Dosage: 50 MG, QD
     Route: 065
     Dates: start: 20170711, end: 20170711
  66. TEMESTA                            /00273201/ [Concomitant]
     Active Substance: LORAZEPAM
     Dosage: 2 MG, UNK
     Dates: start: 20170603, end: 20170603
  67. TEMESTA                            /00273201/ [Concomitant]
     Active Substance: LORAZEPAM
     Dosage: 2 MG, UNK
     Dates: start: 20170607, end: 20170607
  68. TEMESTA                            /00273201/ [Concomitant]
     Active Substance: LORAZEPAM
     Dosage: 10 MG, UNK
     Dates: start: 20170627, end: 20170628
  69. DEPAKINE                           /00228501/ [Concomitant]
     Active Substance: VALPROIC ACID
     Indication: PRODUCT USED FOR UNKNOWN INDICATION
     Dosage: 1 G, UNK
     Dates: start: 20170603, end: 20170610

REACTIONS (2)
  - Hepatic enzyme increased [Recovered/Resolved]
  - Agranulocytosis [Recovered/Resolved]

NARRATIVE: CASE EVENT DATE: 20170703
